FAERS Safety Report 8816136 (Version 1)
Quarter: 2012Q4

REPORT INFORMATION
  Report Type: 
  Country: CO (occurrence: CO)
  Receive Date: 20120929
  Receipt Date: 20120929
  Transmission Date: 20130627
  Serious: Yes (Hospitalization)
  Sender: FDA-Public Use
  Company Number: CO-ACCORD-014755

PATIENT
  Age: 45 Year
  Sex: Male

DRUGS (6)
  1. TOPIRAMATE [Suspect]
     Indication: EPILEPSY
  2. PHENOBARBITAL [Interacting]
     Indication: EPILEPSY
     Dosage: 1,200 mg bolus and then 200 mg/day
  3. CARBAMAZEPINE [Concomitant]
     Indication: EPILEPSY
  4. PHENYOTIN [Concomitant]
     Indication: GENERALIZED TONIC-CLONIC SEIZURE
  5. VALPROIC ACID [Interacting]
     Indication: EPILEPSY
  6. MIDAZOLAM [Concomitant]
     Indication: GENERALIZED TONIC-CLONIC SEIZURE

REACTIONS (2)
  - Hyperammonaemic encephalopathy [Recovering/Resolving]
  - Potentiating drug interaction [Unknown]
